FAERS Safety Report 22531165 (Version 1)
Quarter: 2023Q2

REPORT INFORMATION
  Report Type: Report from Study
  Country: US (occurrence: US)
  Receive Date: 20230607
  Receipt Date: 20230607
  Transmission Date: 20230721
  Serious: Yes (Hospitalization)
  Sender: FDA-Public Use
  Company Number: US-PFIZER INC-US-GBT-016556

PATIENT
  Age: 23 Year
  Sex: Male

DRUGS (27)
  1. VOXELOTOR [Suspect]
     Active Substance: VOXELOTOR
     Indication: Sickle cell disease
     Dosage: 1500 MG, 1X/DAY
     Route: 048
     Dates: start: 20220408
  2. VOXELOTOR [Suspect]
     Active Substance: VOXELOTOR
     Indication: Anaemia
  3. ZOLOFT [Concomitant]
     Active Substance: SERTRALINE HYDROCHLORIDE
     Indication: Anxiety
     Dosage: 50 MG, 1X/DAY
     Route: 048
     Dates: start: 20200909
  4. HYDROXYUREA (HYDREA) [Concomitant]
     Indication: Sickle cell disease
     Dosage: 1500 MG, QOD
     Route: 048
     Dates: start: 20170719
  5. HYDROXYUREA (HYDREA) [Concomitant]
     Dosage: 2000 MG, QOD
     Route: 048
     Dates: start: 20170719
  6. ZOFRAN [Concomitant]
     Active Substance: ONDANSETRON HYDROCHLORIDE
     Indication: Nausea
     Dosage: 8/HOUR
     Route: 048
     Dates: start: 20220411
  7. ZYRTEC [Concomitant]
     Active Substance: CETIRIZINE HYDROCHLORIDE
     Dosage: 10 MG, 1X/DAY
     Route: 048
     Dates: start: 2012
  8. PRINIVIL [Concomitant]
     Active Substance: LISINOPRIL
     Indication: Sickle cell disease
     Dosage: 10 MG, 1X/DAY
     Route: 048
     Dates: start: 20220401
  9. BENADRYL [Concomitant]
     Active Substance: DIPHENHYDRAMINE HYDROCHLORIDE
     Indication: Pruritus
     Dosage: 50 MG
     Route: 048
     Dates: start: 20220113
  10. FOLVITE [Concomitant]
     Active Substance: FOLIC ACID
     Indication: Sickle cell disease
     Dosage: 1 MG, 1X/DAY
     Route: 048
     Dates: start: 20121214
  11. MS CONTIN [Concomitant]
     Active Substance: MORPHINE SULFATE
     Indication: Sickle cell disease
     Dosage: 30 MG, 2X/DAY(30 MG EXTENDED RELEASE TABLET)
     Route: 048
     Dates: start: 20220408, end: 20220531
  12. MS CONTIN [Concomitant]
     Active Substance: MORPHINE SULFATE
     Dosage: 60 MG, 2X/DAY (60 MG 12 EXTENDED RELEASE TABLET)
     Route: 048
     Dates: start: 20220531
  13. SEROQUEL [Concomitant]
     Active Substance: QUETIAPINE FUMARATE
     Dosage: 50 MG, 1X/DAY
     Route: 048
     Dates: start: 20220331
  14. ADAKVEO [Concomitant]
     Active Substance: CRIZANLIZUMAB-TMCA
     Indication: Sickle cell disease
     Dosage: 5 MG/KG,Q4W IN NACL 0.9%100ML INFUSION
     Route: 042
     Dates: start: 20211217
  15. NEURONTIN [Concomitant]
     Active Substance: GABAPENTIN
     Indication: Sickle cell disease
     Dosage: 300 MG, 2X/DAY
     Route: 048
     Dates: start: 20220215, end: 20220613
  16. KENALOG [Concomitant]
     Active Substance: TRIAMCINOLONE ACETONIDE
     Indication: Dermatitis atopic
     Dosage: UNK %
     Route: 061
     Dates: start: 20200917
  17. DOCUSATE/SENNA ALEXANDRINA [Concomitant]
     Indication: Constipation
     Dosage: [SENNA ALEXANDRINA 8.6 MG]/[DOCUSATE 50 MG]  , 2X/DAY
     Route: 048
     Dates: start: 20210423
  18. DRISDOL [Concomitant]
     Active Substance: ERGOCALCIFEROL
     Dosage: 1 DF (1,250 MCG (50,000 UNIT)). EVERY 14 DAYS
     Route: 048
     Dates: start: 20150917, end: 20220728
  19. CLINDAMYCIN-BENZOYL PEROXIDE (BENZACLIN) [Concomitant]
     Indication: Acne
     Dosage: UNK, AS NEEDED
     Route: 061
     Dates: start: 20150425
  20. ROXICODONE [Concomitant]
     Active Substance: OXYCODONE HYDROCHLORIDE
     Indication: Sickle cell disease
     Dosage: 15 MG, Q4H PRN (15 MG IMMEDIATE RELEASE TABLET)
     Route: 048
     Dates: start: 20200923, end: 20230215
  21. MOTRIN [Concomitant]
     Active Substance: IBUPROFEN
     Indication: Sickle cell disease
     Dosage: 600 MG, Q6H PRN
     Route: 048
     Dates: start: 20200402, end: 20230207
  22. AMOXIL [Concomitant]
     Active Substance: AMOXICILLIN
     Indication: Prophylaxis
     Dosage: 250 MG, 2X/DAY
     Route: 048
     Dates: start: 20190322
  23. AMOXIL [Concomitant]
     Active Substance: AMOXICILLIN
     Indication: Asplenia
  24. NALOXONE (NARCAN) 4 MG/ACTUATION NASALSPRAY [Concomitant]
     Dosage: 1 IU, AS NEEDED
     Route: 045
     Dates: start: 20210812
  25. TYLENOL [Concomitant]
     Active Substance: ACETAMINOPHEN
     Indication: Sickle cell disease
     Dosage: 650 MG, ONCE AT ADAKVEO INFUSION, SUBJECT GETS PO TYLENOL ^PRE-MED^ AT EACH ADAKVEO INFUSION APPOINT
     Route: 048
     Dates: start: 20211217
  26. MORPHINE [Concomitant]
     Active Substance: MORPHINE
     Indication: Sickle cell disease
     Dosage: 10 MG, TID
     Route: 042
     Dates: start: 20220531, end: 20220531
  27. TORADOL [Concomitant]
     Active Substance: KETOROLAC TROMETHAMINE
     Indication: Sickle cell disease
     Dosage: 15 MG, SINGLE
     Route: 042
     Dates: start: 20220531, end: 20220531

REACTIONS (1)
  - Sickle cell anaemia with crisis [Recovered/Resolved]

NARRATIVE: CASE EVENT DATE: 20220608
